FAERS Safety Report 12228152 (Version 1)
Quarter: 2016Q2

REPORT INFORMATION
  Report Type: Spontaneous
  Country: DE (occurrence: DE)
  Receive Date: 20160401
  Receipt Date: 20160401
  Transmission Date: 20160815
  Serious: Yes (Other)
  Sender: FDA-Public Use
  Company Number: DE-DRREDDYS-GER/GER/16/0078267

PATIENT
  Age: 25 Year
  Sex: Female
  Weight: 90.5 kg

DRUGS (6)
  1. DOPEGYT [Concomitant]
     Active Substance: METHYLDOPA
     Indication: HYPERTENSION
     Dosage: WEEK 23 - 29 AND 34 - 38.6 DAYS
     Route: 048
  2. LEVOTHYROXINE SODIUM. [Concomitant]
     Active Substance: LEVOTHYROXINE SODIUM
     Indication: HYPOTHYROIDISM
     Route: 048
     Dates: start: 20150310, end: 20151207
  3. METOPROLOL. [Suspect]
     Active Substance: METOPROLOL
     Indication: HYPERTENSION
     Route: 048
  4. ADALAT [Concomitant]
     Active Substance: NIFEDIPINE
     Indication: HYPERTENSION
     Route: 048
  5. HUMIRA [Suspect]
     Active Substance: ADALIMUMAB
     Indication: CROHN^S DISEASE
     Dosage: SINCE JUNE 2013, EVERY TWO WEEKS HUMIRA; ONLY ONCE SINCE PATIENT IS PREGNANT.
     Route: 058
  6. CLOMIFENE [Concomitant]
     Active Substance: CLOMIPHENE
     Indication: OVULATION INDUCTION
     Route: 048

REACTIONS (4)
  - Gestational diabetes [Unknown]
  - Exposure during pregnancy [Unknown]
  - Urinary tract infection [Unknown]
  - Premature labour [Unknown]
